FAERS Safety Report 9014043 (Version 1)
Quarter: 2013Q1

REPORT INFORMATION
  Report Type: Spontaneous
  Country: US (occurrence: US)
  Receive Date: 20130115
  Receipt Date: 20130115
  Transmission Date: 20140127
  Serious: No
  Sender: FDA-Public Use
  Company Number: US-009507513-1301USA006404

PATIENT
  Age: 11 Year
  Sex: Male
  Weight: 36.28 kg

DRUGS (2)
  1. CLARITIN ORAL SOLUTION [Suspect]
     Indication: LACRIMATION INCREASED
     Dosage: UNK, BID
     Route: 048
     Dates: start: 20130103
  2. CLARITIN ORAL SOLUTION [Suspect]
     Indication: RESPIRATORY TRACT CONGESTION

REACTIONS (2)
  - Overdose [Recovering/Resolving]
  - No adverse event [Recovering/Resolving]
